FAERS Safety Report 9618611 (Version 1)
Quarter: 2013Q4

REPORT INFORMATION
  Report Type: Spontaneous
  Country: US (occurrence: US)
  Receive Date: 20131014
  Receipt Date: 20131014
  Transmission Date: 20140711
  Serious: No
  Sender: FDA-Public Use
  Company Number: US-PFIZER INC-2013292544

PATIENT
  Age: 58 Year
  Sex: Female
  Weight: 127 kg

DRUGS (11)
  1. NEURONTIN [Suspect]
     Indication: FIBROMYALGIA
     Dosage: 300 MG, 1X/DAY
     Dates: start: 20130101
  2. NEURONTIN [Suspect]
     Dosage: 600 MG, 2X/DAY
  3. NEURONTIN [Suspect]
     Dosage: 600 MG, 3X/DAY
  4. NEURONTIN [Suspect]
     Dosage: 600 MG, 2X/DAY
     Dates: end: 20131009
  5. CRESTOR [Suspect]
     Indication: BLOOD CHOLESTEROL INCREASED
     Dosage: 10 MG, 1X/DAY
  6. LISINOPRIL [Concomitant]
     Indication: BLOOD PRESSURE ABNORMAL
     Dosage: 40 MG, 1X/DAY
  7. AMLODIPINE [Concomitant]
     Indication: BLOOD PRESSURE ABNORMAL
     Dosage: 10 MG, 1X/DAY
  8. RANITIDINE [Concomitant]
     Indication: DUODENOGASTRIC REFLUX
     Dosage: 150 MG, 2X/DAY
  9. BABY ASPIRIN [Concomitant]
     Dosage: 81 MG, UNK
  10. MULTIVITAMINS [Concomitant]
     Dosage: UNK
  11. FISH OIL [Concomitant]
     Dosage: UNK

REACTIONS (6)
  - Off label use [Unknown]
  - Dyspnoea [Unknown]
  - Dizziness [Unknown]
  - Weight increased [Unknown]
  - Blood cholesterol increased [Unknown]
  - Drug ineffective [Unknown]
